FAERS Safety Report 22647731 (Version 1)
Quarter: 2023Q2

REPORT INFORMATION
  Report Type: Spontaneous
  Country: FR (occurrence: FR)
  Receive Date: 20230628
  Receipt Date: 20230628
  Transmission Date: 20230722
  Serious: Yes (Hospitalization)
  Sender: FDA-Public Use
  Company Number: None

PATIENT
  Age: 29 Year
  Sex: Female
  Weight: 84 kg

DRUGS (1)
  1. OCREVUS [Suspect]
     Active Substance: OCRELIZUMAB
     Indication: Relapsing-remitting multiple sclerosis
     Dosage: 1ST ADMISSION ON OCTOBER 3, 2023 AND 2ND ADMISSION ON OCTOBER 17, 2023
     Route: 065
     Dates: start: 20221003, end: 20221017

REACTIONS (3)
  - Oligohydramnios [Recovered/Resolved with Sequelae]
  - Foetal death [Unknown]
  - Maternal exposure timing unspecified [Unknown]

NARRATIVE: CASE EVENT DATE: 20230417
